FAERS Safety Report 21754442 (Version 1)
Quarter: 2022Q4

REPORT INFORMATION
  Report Type: Spontaneous
  Country: CA (occurrence: CA)
  Receive Date: 20221220
  Receipt Date: 20221220
  Transmission Date: 20230112
  Serious: Yes (Other)
  Sender: FDA-Public Use
  Company Number: CA-PFIZER INC-202201380930

PATIENT
  Age: 69 Year
  Sex: Male

DRUGS (1)
  1. METHOTREXATE SODIUM [Suspect]
     Active Substance: METHOTREXATE SODIUM
     Dosage: 25 MG, WEEKLY
     Route: 048
     Dates: end: 20220518

REACTIONS (5)
  - Ileal stenosis [Not Recovered/Not Resolved]
  - Treatment failure [Unknown]
  - Inflammation [Not Recovered/Not Resolved]
  - Mucosal hyperaemia [Unknown]
  - Abdominal distension [Unknown]

NARRATIVE: CASE EVENT DATE: 20220101
